FAERS Safety Report 7670252-3 (Version None)
Quarter: 2011Q3

REPORT INFORMATION
  Report Type: 
  Country: None (occurrence: None)
  Receive Date: 20110809
  Receipt Date: 20110729
  Transmission Date: 20111222
  Serious: Yes (Hospitalization)
  Sender: FDA-Public Use
  Company Number: US-AMGEN-USACT2011031471

PATIENT
  Age: 69 Year
  Sex: Female

DRUGS (8)
  1. DUONEB [Suspect]
     Indication: PRODUCT USED FOR UNKNOWN INDICATION
  2. DOCETAXEL [Suspect]
     Indication: UTERINE LEIOMYOSARCOMA
     Dosage: 75 MG/M2, UNK
     Route: 042
     Dates: start: 20100922
  3. GEMCITABINE [Suspect]
     Indication: UTERINE LEIOMYOSARCOMA
     Dosage: 900 MG/M2, UNK
     Route: 042
     Dates: start: 20100922
  4. CEFAZOLIN [Suspect]
     Indication: PRODUCT USED FOR UNKNOWN INDICATION
  5. NEURONTIN [Suspect]
     Indication: PRODUCT USED FOR UNKNOWN INDICATION
  6. SYNTHROID [Suspect]
     Indication: PRODUCT USED FOR UNKNOWN INDICATION
  7. FILGRASTIM [Suspect]
     Indication: UTERINE LEIOMYOSARCOMA
     Dosage: 150 A?G/M2, UNK
     Route: 058
     Dates: start: 20100922
  8. BEVACIZUMAB [Suspect]
     Indication: UTERINE LEIOMYOSARCOMA
     Dosage: UNK
     Route: 042
     Dates: start: 20100922

REACTIONS (6)
  - DEVICE RELATED INFECTION [None]
  - FRACTURE [None]
  - SOFT TISSUE INFECTION [None]
  - PYREXIA [None]
  - LUNG INFECTION [None]
  - HIP FRACTURE [None]
